FAERS Safety Report 6542565-X (Version None)
Quarter: 2010Q1

REPORT INFORMATION
  Report Type: 
  Country: None (occurrence: None)
  Receive Date: 20100119
  Receipt Date: 20100105
  Transmission Date: 20100710
  Serious: Yes (Other)
  Sender: FDA-Public Use
  Company Number: DE-MYLANLABS-2009S1020777

PATIENT
  Age: 49 Year
  Sex: Male
  Weight: 75 kg

DRUGS (4)
  1. METODURA [Suspect]
     Indication: HYPERTENSION
     Route: 048
     Dates: start: 20090731, end: 20091015
  2. PANTOPRAZOLE [Concomitant]
     Indication: DRUG USE FOR UNKNOWN INDICATION
  3. METOCLOPRAMIDE [Concomitant]
     Indication: DRUG USE FOR UNKNOWN INDICATION
  4. KREON /00014701/ [Concomitant]
     Indication: DRUG USE FOR UNKNOWN INDICATION

REACTIONS (5)
  - COLD SWEAT [None]
  - DIARRHOEA [None]
  - HYPOGLYCAEMIA [None]
  - NAUSEA [None]
  - POST GASTRIC SURGERY SYNDROME [None]
